FAERS Safety Report 7126357-9 (Version None)
Quarter: 2010Q4

REPORT INFORMATION
  Report Type: 
  Country: None (occurrence: None)
  Receive Date: 20101129
  Receipt Date: 20101122
  Transmission Date: 20110411
  Serious: Yes (Hospitalization)
  Sender: FDA-Public Use
  Company Number: US-US-EMD SERONO, INC.-7029191

PATIENT
  Sex: Female

DRUGS (3)
  1. REBIF [Suspect]
     Indication: PRODUCT USED FOR UNKNOWN INDICATION
     Route: 058
     Dates: start: 20070212
  2. BIRTH CONTROL [Concomitant]
     Dates: end: 20080101
  3. UNSPECIFIED MEDICATIONS [Concomitant]

REACTIONS (2)
  - BREAST CANCER [None]
  - POSTOPERATIVE WOUND INFECTION [None]
